FAERS Safety Report 4788863-1 (Version None)
Quarter: 2005Q4

REPORT INFORMATION
  Report Type: 
  Country: None (occurrence: None)
  Receive Date: 20051005
  Receipt Date: 20050725
  Transmission Date: 20060501
  Serious: Yes (Life-Threatening, Hospitalization)
  Sender: FDA-Public Use
  Company Number: PHBS2005JP10790

PATIENT
  Age: 63 Year
  Sex: Male
  Weight: 56 kg

DRUGS (11)
  1. DIOVAN [Suspect]
     Indication: HYPERTENSION
     Dosage: 40 MG/DAY
     Route: 048
     Dates: start: 20050705, end: 20050713
  2. OMEPRAZOLE [Suspect]
     Indication: OESOPHAGEAL ULCER
     Dosage: 40 MG, BID
     Route: 042
     Dates: start: 20050628, end: 20050704
  3. OMEPRAZOLE [Suspect]
     Dosage: 20 MG, QD
     Route: 048
     Dates: start: 20050705, end: 20050713
  4. ADALAT [Suspect]
     Indication: HYPERTENSION
     Dosage: 40 MG, BID
     Route: 048
     Dates: start: 20050625, end: 20050713
  5. ALLOPURINOL [Concomitant]
     Indication: HYPERURICAEMIA
     Dosage: 100MG/DAY
     Route: 048
  6. PANSPORIN T [Suspect]
     Indication: BRONCHITIS
     Dosage: 200 MG, BID
     Route: 048
     Dates: start: 20050623, end: 20050627
  7. PANSPORIN [Suspect]
     Indication: BRONCHITIS
     Dosage: 1 G, QD
     Route: 042
     Dates: start: 20050628, end: 20050630
  8. CRAVIT [Suspect]
     Indication: BRONCHITIS
     Dosage: 100 MG, TID
     Route: 048
     Dates: start: 20050712, end: 20050713
  9. KREMEZIN [Concomitant]
     Indication: RENAL FAILURE CHRONIC
     Dosage: 6 G/DAY
     Route: 048
     Dates: end: 20050713
  10. CONIEL [Concomitant]
     Indication: HYPERTENSION
     Dosage: 8 MG/DAY
     Route: 048
  11. ZANTAC [Concomitant]
     Indication: GASTRITIS
     Dosage: 150 MG/DAY
     Route: 048
     Dates: end: 20050713

REACTIONS (9)
  - C-REACTIVE PROTEIN INCREASED [None]
  - GRANULOCYTE COUNT DECREASED [None]
  - INTERSTITIAL LUNG DISEASE [None]
  - LUNG INFILTRATION [None]
  - NEUTROPHIL COUNT DECREASED [None]
  - OESOPHAGEAL ULCER [None]
  - PO2 ABNORMAL [None]
  - PYREXIA [None]
  - WHITE BLOOD CELL COUNT DECREASED [None]
